FAERS Safety Report 17242493 (Version 1)
Quarter: 2020Q1

REPORT INFORMATION
  Report Type: Spontaneous
  Country: US (occurrence: US)
  Receive Date: 20200106
  Receipt Date: 20200106
  Transmission Date: 20200409
  Serious: Yes (Hospitalization)
  Sender: FDA-Public Use
  Company Number: None

PATIENT
  Age: 15 Year
  Sex: Male

DRUGS (9)
  1. LINZESS CAP 290MCG [Concomitant]
     Dates: start: 20191111
  2. PULMOZYME [Suspect]
     Active Substance: DORNASE ALFA
     Dosage: ?          OTHER FREQUENCY:ONCE PER DAY;?
     Route: 045
     Dates: start: 20181113
  3. CULTURELLE CAP [Concomitant]
     Dates: start: 20191008
  4. PREGABALIN CAP 100MG [Concomitant]
     Dates: start: 20190927
  5. PULMICORT SUS 0.5MG/2 [Concomitant]
     Dates: start: 20191231
  6. SMZ/TMP DS TAB 800-160 [Concomitant]
     Active Substance: SULFAMETHOXAZOLE\TRIMETHOPRIM
     Dates: start: 20191218
  7. AMITRIPTYLIN TAB 10MG [Concomitant]
     Dates: start: 20200105
  8. OMPERAZOLE CAP 20MG [Concomitant]
     Dates: start: 20191106
  9. PERTZYE CAP 24000U [Concomitant]
     Dates: start: 20190801

REACTIONS (2)
  - Surgery [None]
  - Pneumonia [None]

NARRATIVE: CASE EVENT DATE: 20191215
